FAERS Safety Report 12339167 (Version 2)
Quarter: 2016Q2

REPORT INFORMATION
  Report Type: Report from Study
  Country: DE (occurrence: DE)
  Receive Date: 20160505
  Receipt Date: 20160628
  Transmission Date: 20160815
  Serious: Yes (Hospitalization)
  Sender: FDA-Public Use
  Company Number: DE-ABBVIE-16K-062-1572183-00

PATIENT
  Age: 61 Year
  Sex: Male

DRUGS (2)
  1. HUMIRA [Suspect]
     Active Substance: ADALIMUMAB
     Indication: CROHN^S DISEASE
     Route: 058
     Dates: start: 20150528
  2. CLAVERSAL [Concomitant]
     Active Substance: MESALAMINE
     Indication: PRODUCT USED FOR UNKNOWN INDICATION

REACTIONS (5)
  - Post procedural complication [Not Recovered/Not Resolved]
  - Fistula discharge [Recovering/Resolving]
  - Skin mass [Not Recovered/Not Resolved]
  - Gastrointestinal pain [Recovering/Resolving]
  - Gastrointestinal fistula [Recovering/Resolving]

NARRATIVE: CASE EVENT DATE: 201602
